FAERS Safety Report 8978766 (Version 1)
Quarter: 2012Q4

REPORT INFORMATION
  Report Type: 
  Country: US (occurrence: US)
  Receive Date: 20121221
  Receipt Date: 20121221
  Transmission Date: 20130627
  Serious: Yes (Other)
  Sender: FDA-Public Use
  Company Number: US-PFIZER INC-2012320183

PATIENT
  Sex: Female

DRUGS (1)
  1. CLEOCIN [Suspect]
     Dosage: 100 mg, UNK

REACTIONS (3)
  - Product physical issue [Unknown]
  - Haemorrhage [Unknown]
  - Discomfort [Unknown]
